FAERS Safety Report 8381924-X (Version None)
Quarter: 2012Q2

REPORT INFORMATION
  Report Type: 
  Country: None (occurrence: None)
  Receive Date: 20120524
  Receipt Date: 20120509
  Transmission Date: 20120825
  Serious: Yes (Hospitalization)
  Sender: FDA-Public Use
  Company Number: CA-JNJFOC-20120510267

PATIENT
  Sex: Female
  Weight: 63.5 kg

DRUGS (13)
  1. CELEXA [Concomitant]
     Route: 065
     Dates: end: 20120101
  2. HYDROXYZINE [Concomitant]
     Indication: PRURITUS
     Route: 065
  3. REMICADE [Suspect]
     Indication: RHEUMATOID ARTHRITIS
     Route: 042
     Dates: start: 20050101, end: 20120315
  4. GRAVOL TAB [Concomitant]
     Indication: NAUSEA
     Route: 065
  5. RIVACOCET [Concomitant]
     Dosage: DOSE: 5/325 MG
     Route: 065
  6. APO-SULIN [Concomitant]
     Route: 065
  7. FOLIC ACID [Concomitant]
     Route: 065
  8. RANITIDINE [Concomitant]
     Route: 065
  9. NAPROXEN (ALEVE) [Concomitant]
     Route: 065
  10. SALAGEN [Concomitant]
     Route: 065
  11. METHOTREXATE [Concomitant]
     Route: 048
  12. NEURASTON [Concomitant]
     Route: 065
  13. NEXIUM [Concomitant]
     Route: 065

REACTIONS (4)
  - PERITONSILLAR ABSCESS [None]
  - MELAENA [None]
  - STAPHYLOCOCCAL INFECTION [None]
  - HAEMOGLOBIN DECREASED [None]
